FAERS Safety Report 24057639 (Version 1)
Quarter: 2024Q3

REPORT INFORMATION
  Report Type: Spontaneous
  Country: US (occurrence: US)
  Receive Date: 20240706
  Receipt Date: 20240706
  Transmission Date: 20241017
  Serious: Yes (Death, Other)
  Sender: AMGEN
  Company Number: US-AMGEN-USASP2024129640

PATIENT

DRUGS (1)
  1. FILGRASTIM [Suspect]
     Active Substance: FILGRASTIM
     Indication: Allogenic stem cell transplantation
     Dosage: 5 MICROGRAM/KILOGRAM, FROM DAY 12 AFTER TRANSPLANT UNTIL ENGRAFTMENT
     Route: 065

REACTIONS (2)
  - Death [Fatal]
  - Cytopenia [Unknown]
